FAERS Safety Report 20382132 (Version 1)
Quarter: 2022Q1

REPORT INFORMATION
  Report Type: Spontaneous
  Country: ER (occurrence: None)
  Receive Date: 20220127
  Receipt Date: 20220127
  Transmission Date: 20220423
  Serious: Yes (Life-Threatening, Other)
  Sender: FDA-Public Use
  Company Number: ER-MICRO LABS LIMITED-ML2022-00255

PATIENT
  Sex: Female

DRUGS (2)
  1. DICLOFENAC [Suspect]
     Active Substance: DICLOFENAC
     Route: 054
  2. BUPIVACAINE [Concomitant]
     Active Substance: BUPIVACAINE
     Route: 008

REACTIONS (2)
  - Rhabdomyolysis [Recovered/Resolved]
  - Exposure during pregnancy [Unknown]
